FAERS Safety Report 21962830 (Version 2)
Quarter: 2023Q1

REPORT INFORMATION
  Report Type: Spontaneous
  Country: US (occurrence: US)
  Receive Date: 20230207
  Receipt Date: 20230210
  Transmission Date: 20230418
  Serious: No
  Sender: FDA-Public Use
  Company Number: US-TORRENT-00012173

PATIENT
  Sex: Female

DRUGS (1)
  1. ESCITALOPRAM OXALATE [Suspect]
     Active Substance: ESCITALOPRAM OXALATE
     Indication: Depression
     Dosage: A WEEK AGO, 20 MG ONE TABLET EVERY EVENING
     Route: 065

REACTIONS (3)
  - Abdominal discomfort [Unknown]
  - Product quality issue [Unknown]
  - Hypersensitivity [Unknown]
